FAERS Safety Report 8234502-7 (Version None)
Quarter: 2012Q1

REPORT INFORMATION
  Report Type: 
  Country: None (occurrence: None)
  Receive Date: 20120322
  Receipt Date: 20120313
  Transmission Date: 20120608
  Serious: Yes (Hospitalization)
  Sender: FDA-Public Use
  Company Number: 2012SP005090

PATIENT
  Sex: Female
  Weight: 92 kg

DRUGS (7)
  1. CLARIMAX [Concomitant]
  2. IDON [Concomitant]
  3. AMOXICILLIN [Concomitant]
  4. LANSOPRAZOLE [Concomitant]
  5. BURTEN [Concomitant]
  6. NUVARING [Suspect]
     Indication: CONTRACEPTION
     Dosage: ;QM; VAG
     Route: 067
     Dates: start: 20110801
  7. OMEPRAZOLE [Concomitant]

REACTIONS (7)
  - ABNORMAL WITHDRAWAL BLEEDING [None]
  - HEPATIC STEATOSIS [None]
  - OVERWEIGHT [None]
  - BLOOD GLUCOSE ABNORMAL [None]
  - INSULIN RESISTANCE SYNDROME [None]
  - INCORRECT DRUG ADMINISTRATION DURATION [None]
  - DEVICE MISUSE [None]
